FAERS Safety Report 5924468-4 (Version None)
Quarter: 2008Q4

REPORT INFORMATION
  Report Type: 
  Country: None (occurrence: None)
  Receive Date: 20081020
  Receipt Date: 20081013
  Transmission Date: 20090506
  Serious: No
  Sender: FDA-Public Use
  Company Number: US-B.I. PHARMACEUTICALS,INC./RIDGEFIELD-2008-BP-14812BP

PATIENT
  Sex: Female

DRUGS (6)
  1. SPIRIVA [Suspect]
     Indication: CHRONIC OBSTRUCTIVE PULMONARY DISEASE
     Dosage: 18MCG
     Route: 055
     Dates: start: 20080904, end: 20080909
  2. SPIRIVA [Suspect]
     Dosage: 18MCG
     Route: 055
     Dates: start: 20080913, end: 20080920
  3. TRAMADOL HCL [Concomitant]
  4. PREMPRO [Concomitant]
  5. CITALOPRAM HYDROBROMIDE [Concomitant]
  6. TRAZODONE HCL [Concomitant]

REACTIONS (2)
  - ABDOMINAL PAIN LOWER [None]
  - DIARRHOEA [None]
